FAERS Safety Report 14355270 (Version 3)
Quarter: 2018Q2

REPORT INFORMATION
  Report Type: Spontaneous
  Country: DE (occurrence: DE)
  Receive Date: 20180105
  Receipt Date: 20180511
  Transmission Date: 20180711
  Serious: Yes (Death, Hospitalization, Other)
  Sender: FDA-Public Use
  Company Number: DE-AUROBINDO-AUR-APL-2018-000285

PATIENT
  Age: 78 Year
  Sex: Male

DRUGS (49)
  1. SPIRIVA [Suspect]
     Active Substance: TIOTROPIUM BROMIDE MONOHYDRATE
     Indication: PNEUMONIA
     Dosage: ()
     Route: 065
     Dates: start: 201601
  2. DRONABINOL. [Suspect]
     Active Substance: DRONABINOL
     Indication: DELIRIUM
     Dosage: 2.5 MG, DAILY
     Route: 065
  3. DEXTROMETHORPHAN HYDROBROMIDE. [Suspect]
     Active Substance: DEXTROMETHORPHAN HYDROBROMIDE
     Indication: DELIRIUM
     Dosage: TWO DIVIDED DOSES ()
     Route: 065
     Dates: start: 2017
  4. LORAZEPAM. [Suspect]
     Active Substance: LORAZEPAM
     Indication: DEMENTIA WITH LEWY BODIES
     Dosage: ()
     Route: 065
     Dates: start: 2016
  5. RIVASTIGMINE. [Concomitant]
     Active Substance: RIVASTIGMINE
     Dosage: ()
     Route: 065
  6. TRAZODONE [Concomitant]
     Active Substance: TRAZODONE HYDROCHLORIDE
     Dosage: ()
     Route: 065
  7. FORMOTEROL FUMARATE [Suspect]
     Active Substance: FORMOTEROL FUMARATE
     Indication: PNEUMONIA
     Dosage: ()
     Route: 065
     Dates: start: 201601
  8. RIVASTIGMINE. [Concomitant]
     Active Substance: RIVASTIGMINE
     Indication: DEMENTIA WITH LEWY BODIES
     Dosage: ()
     Route: 065
  9. ZUCLOPENTHIXOL [Concomitant]
     Active Substance: ZUCLOPENTHIXOL
     Indication: PRODUCT USED FOR UNKNOWN INDICATION
     Dosage: ()
     Route: 065
  10. PIPAMPERONE [Concomitant]
     Active Substance: PIPAMPERONE
     Dosage: ()
     Route: 065
  11. RISPERIDONE. [Concomitant]
     Active Substance: RISPERIDONE
     Dosage: ()
     Route: 065
  12. ARIPIPRAZOLE. [Concomitant]
     Active Substance: ARIPIPRAZOLE
     Dosage: ()
     Route: 065
  13. MIRTAZAPINE. [Concomitant]
     Active Substance: MIRTAZAPINE
     Dosage: ()
     Route: 065
  14. DRONABINOL. [Suspect]
     Active Substance: DRONABINOL
     Dosage: 2.5 MILLIGRAM
     Route: 065
  15. DRONABINOL. [Suspect]
     Active Substance: DRONABINOL
     Route: 065
  16. DEXTROMETHORPHAN HYDROBROMIDE. [Suspect]
     Active Substance: DEXTROMETHORPHAN HYDROBROMIDE
     Dosage: 24 MILLIGRAM
     Route: 065
     Dates: start: 2017
  17. RIVASTIGMINE. [Concomitant]
     Active Substance: RIVASTIGMINE
     Dosage: ()
     Route: 065
  18. FLUPENTIXOL [Concomitant]
     Active Substance: FLUPENTIXOL
     Dosage: ()
     Route: 048
  19. MIRTAZAPINE. [Concomitant]
     Active Substance: MIRTAZAPINE
     Indication: PRODUCT USED FOR UNKNOWN INDICATION
     Dosage: ()
     Route: 065
  20. CARBAMAZEPINE. [Concomitant]
     Active Substance: CARBAMAZEPINE
     Indication: PRODUCT USED FOR UNKNOWN INDICATION
     Dosage: ()
     Route: 065
  21. DRONABINOL. [Suspect]
     Active Substance: DRONABINOL
     Dosage: DOSAGE RANGING FROM 2.5-15 MG/D; LATER INCREASED
     Route: 065
     Dates: start: 2016
  22. DEXTROMETHORPHAN HYDROBROMIDE. [Suspect]
     Active Substance: DEXTROMETHORPHAN HYDROBROMIDE
     Dosage: 24 MG, QD
     Route: 065
     Dates: start: 20170101
  23. TRAZODONE [Concomitant]
     Active Substance: TRAZODONE HYDROCHLORIDE
     Indication: PRODUCT USED FOR UNKNOWN INDICATION
     Dosage: ()
     Route: 065
  24. AMISULPRIDE [Concomitant]
     Active Substance: AMISULPRIDE
     Indication: PRODUCT USED FOR UNKNOWN INDICATION
     Dosage: ()
     Route: 065
  25. RISPERIDONE. [Concomitant]
     Active Substance: RISPERIDONE
     Indication: PRODUCT USED FOR UNKNOWN INDICATION
     Dosage: ()
     Route: 065
  26. CLOZAPINE. [Concomitant]
     Active Substance: CLOZAPINE
     Dosage: ()
     Route: 065
  27. CARBAMAZEPINE. [Concomitant]
     Active Substance: CARBAMAZEPINE
     Dosage: ()
     Route: 065
  28. PAROXETINE. [Suspect]
     Active Substance: PAROXETINE
     Indication: DELIRIUM
     Dosage: 10 MG, DAILY
     Route: 065
     Dates: start: 2017
  29. DRONABINOL. [Suspect]
     Active Substance: DRONABINOL
  30. DRONABINOL. [Suspect]
     Active Substance: DRONABINOL
     Route: 065
  31. LORAZEPAM. [Suspect]
     Active Substance: LORAZEPAM
     Indication: DELIRIUM
     Dosage: ()
     Route: 065
     Dates: start: 2016
  32. AMISULPRIDE [Concomitant]
     Active Substance: AMISULPRIDE
     Dosage: ()
     Route: 065
  33. FLUPENTIXOL [Concomitant]
     Active Substance: FLUPENTIXOL
     Dosage: DOSE RAISED TO 20 MG/DAY ()
     Route: 048
  34. ARIPIPRAZOLE. [Concomitant]
     Active Substance: ARIPIPRAZOLE
     Indication: PRODUCT USED FOR UNKNOWN INDICATION
     Dosage: ()
     Route: 065
  35. BENPERIDOL [Concomitant]
     Active Substance: BENPERIDOL
     Dosage: ()
     Route: 065
  36. DIAZEPAM. [Concomitant]
     Active Substance: DIAZEPAM
     Indication: PRODUCT USED FOR UNKNOWN INDICATION
     Dosage: ()
     Route: 065
  37. QUETIAPINE. [Suspect]
     Active Substance: QUETIAPINE
     Indication: PRODUCT USED FOR UNKNOWN INDICATION
     Dosage: 100 MG, QD
     Route: 065
  38. DRONABINOL. [Suspect]
     Active Substance: DRONABINOL
     Dosage: 2.5 MG, DAILY
     Route: 065
  39. DRONABINOL. [Suspect]
     Active Substance: DRONABINOL
     Dosage: 15 MILLIGRAM
     Route: 065
  40. BENPERIDOL [Concomitant]
     Active Substance: BENPERIDOL
     Indication: PRODUCT USED FOR UNKNOWN INDICATION
     Dosage: ()
     Route: 065
  41. DIAZEPAM. [Concomitant]
     Active Substance: DIAZEPAM
     Dosage: ()
     Route: 065
  42. AMPICILLIN/SULBACTAM ACTAVIS [Suspect]
     Active Substance: AMPICILLIN SODIUM\SULBACTAM SODIUM
     Indication: PNEUMONIA
     Dosage: ()
     Route: 065
     Dates: start: 201601
  43. PIPAMPERONE [Concomitant]
     Active Substance: PIPAMPERONE
     Indication: PRODUCT USED FOR UNKNOWN INDICATION
     Dosage: ()
     Route: 065
  44. FLUPENTIXOL [Concomitant]
     Active Substance: FLUPENTIXOL
     Indication: PRODUCT USED FOR UNKNOWN INDICATION
     Dosage: DOSE RAISED TO 20 MG/DAY ()
     Route: 048
  45. FLUPENTIXOL [Concomitant]
     Active Substance: FLUPENTIXOL
     Dosage: ()
     Route: 048
  46. PAROXETINE. [Suspect]
     Active Substance: PAROXETINE
     Indication: DELIRIUM
  47. DRONABINOL. [Suspect]
     Active Substance: DRONABINOL
     Dosage: DOSAGE RANGING FROM 2.5-15 MG/D; LATER INCREASED
     Route: 065
  48. ZUCLOPENTHIXOL [Concomitant]
     Active Substance: ZUCLOPENTHIXOL
     Dosage: ()
     Route: 065
  49. CLOZAPINE. [Concomitant]
     Active Substance: CLOZAPINE
     Indication: PRODUCT USED FOR UNKNOWN INDICATION
     Dosage: ()
     Route: 065

REACTIONS (14)
  - Sleep disorder [Fatal]
  - Paranoia [Fatal]
  - Agitation [Fatal]
  - Product use in unapproved indication [Fatal]
  - Aggression [Fatal]
  - Off label use [Fatal]
  - Fatigue [Fatal]
  - Condition aggravated [Recovering/Resolving]
  - Rebound effect [Fatal]
  - Paradoxical drug reaction [Fatal]
  - Completed suicide [Fatal]
  - Hangover [Fatal]
  - Withdrawal syndrome [Fatal]
  - Delirium [Fatal]

NARRATIVE: CASE EVENT DATE: 201601
